FAERS Safety Report 8926464 (Version 3)
Quarter: 2013Q2

REPORT INFORMATION
  Report Type: Spontaneous
  Country: FR (occurrence: FR)
  Receive Date: 20121127
  Receipt Date: 20130515
  Transmission Date: 20140414
  Serious: Yes (Death, Hospitalization, Other)
  Sender: FDA-Public Use
  Company Number: FR-PFIZER INC-2012293335

PATIENT
  Age: 50 Year
  Sex: Male

DRUGS (24)
  1. LYRICA [Suspect]
     Dosage: 450 MG, DAILY
     Route: 048
  2. TEMESTA [Suspect]
     Dosage: 2.5 MG, DAILY
  3. LEVACT [Suspect]
     Indication: PLASMA CELL MYELOMA
     Dosage: 120 MG/M2, CYCLIC, EVERY 4 WEEKS
     Route: 042
     Dates: start: 20120425
  4. HALDOL [Suspect]
     Dosage: 0.5 MG, DAILY
     Route: 048
  5. INEXIUM [Suspect]
     Dosage: 40 MG, DAILY
     Route: 048
  6. BACTRIM FORTE [Suspect]
     Dosage: 1 DF, ON MONDAY, WEDNESDAY, FRIDAY
     Route: 048
  7. BACLOFEN [Suspect]
     Dosage: 2 DF, 3X/DAY
     Route: 048
  8. COLTRAMYL [Suspect]
     Dosage: 4 MG, 3X/DAY
     Route: 048
  9. LASILIX [Suspect]
     Dosage: 20 MG, DAILY
     Route: 048
  10. OXYCONTIN [Suspect]
     Dosage: UNK
     Route: 048
  11. TOPALGIC [Suspect]
     Dosage: 200 MG, DAILY
     Route: 048
  12. DAFALGAN [Suspect]
     Dosage: 1 G, 4X/DAY
     Route: 048
  13. ZOPICLONE [Suspect]
     Dosage: UNK
     Route: 048
  14. LAROXYL ROCHE [Suspect]
     Dosage: UNK
     Route: 048
  15. TAZOCILLINE [Concomitant]
     Indication: BACTERIAL PYELONEPHRITIS
     Dosage: UNK
  16. TAZOCILLINE [Concomitant]
     Indication: SEPSIS
  17. VANCOMYCIN [Concomitant]
     Indication: BACTERIAL PYELONEPHRITIS
     Dosage: UNK
  18. VANCOMYCIN [Concomitant]
     Indication: SEPSIS
  19. GENTAMICIN [Concomitant]
     Indication: BACTERIAL PYELONEPHRITIS
     Dosage: UNK
  20. GENTAMICIN [Concomitant]
     Indication: SEPSIS
  21. PIPERACILLIN [Concomitant]
     Indication: BACTERIAL PYELONEPHRITIS
     Dosage: UNK
  22. PIPERACILLIN [Concomitant]
     Indication: SEPSIS
  23. CIFLOX [Concomitant]
     Indication: BACTERIAL PYELONEPHRITIS
     Dosage: UNK
  24. CIFLOX [Concomitant]
     Indication: SEPSIS

REACTIONS (4)
  - Plasmacytoma [Fatal]
  - Spinal disorder [Fatal]
  - Staphylococcal bacteraemia [Fatal]
  - Jaundice cholestatic [Not Recovered/Not Resolved]
